FAERS Safety Report 13073836 (Version 2)
Quarter: 2021Q1

REPORT INFORMATION
  Report Type: Spontaneous
  Country: US (occurrence: US)
  Receive Date: 20161229
  Receipt Date: 20210223
  Transmission Date: 20210419
  Serious: Yes (Hospitalization, Other)
  Sender: FDA-Public Use
  Company Number: US-TAKEDA-2016TUS022894

PATIENT
  Sex: Female
  Weight: 61.22 kg

DRUGS (11)
  1. ULTRAM [Concomitant]
     Active Substance: TRAMADOL HYDROCHLORIDE
     Indication: PAIN
     Dosage: UNK
  2. REMICADE [Concomitant]
     Active Substance: INFLIXIMAB
     Dosage: UNK
     Dates: start: 2003, end: 2006
  3. ENTYVIO [Suspect]
     Active Substance: VEDOLIZUMAB
     Indication: CROHN^S DISEASE
     Dosage: UNK
     Route: 042
     Dates: start: 201602, end: 20160408
  4. HUMIRA [Suspect]
     Active Substance: ADALIMUMAB
     Indication: RHEUMATOID ARTHRITIS
     Dosage: 40 MILLIGRAM
     Route: 058
     Dates: start: 2006, end: 201602
  5. HUMIRA [Suspect]
     Active Substance: ADALIMUMAB
     Indication: CROHN^S DISEASE
  6. METHOTREXATE. [Concomitant]
     Active Substance: METHOTREXATE
     Indication: RHEUMATOID ARTHRITIS
     Dosage: UNK
  7. FETZIMA [Concomitant]
     Active Substance: LEVOMILNACIPRAN HYDROCHLORIDE
     Indication: PAIN
     Dosage: UNK
  8. CYMBALTA [Concomitant]
     Active Substance: DULOXETINE HYDROCHLORIDE
     Indication: PAIN
     Dosage: UNK
  9. GABAPENTIN. [Concomitant]
     Active Substance: GABAPENTIN
     Indication: PAIN
     Dosage: UNK
  10. ADDERALL [Concomitant]
     Active Substance: AMPHETAMINE ASPARTATE\AMPHETAMINE SULFATE\DEXTROAMPHETAMINE SACCHARATE\DEXTROAMPHETAMINE SULFATE
     Indication: ATTENTION DEFICIT HYPERACTIVITY DISORDER
     Dosage: UNK
  11. BUSPAR [Concomitant]
     Active Substance: BUSPIRONE HYDROCHLORIDE
     Indication: ANXIETY
     Dosage: UNK

REACTIONS (15)
  - Hypersomnia [Recovered/Resolved]
  - Fatigue [Unknown]
  - Cerebrovascular accident [Recovered/Resolved]
  - Peripheral swelling [Recovered/Resolved]
  - Atrial fibrillation [Recovered/Resolved]
  - Stress at work [Unknown]
  - Drug ineffective [Unknown]
  - Loss of consciousness [Recovered/Resolved]
  - Seizure [Recovered/Resolved]
  - Weight decreased [Unknown]
  - Crohn^s disease [Recovered/Resolved]
  - Hepatic failure [Unknown]
  - Diarrhoea haemorrhagic [Not Recovered/Not Resolved]
  - Heart rate increased [Recovered/Resolved]
  - Pain [Not Recovered/Not Resolved]

NARRATIVE: CASE EVENT DATE: 2016
